FAERS Safety Report 6920042-1 (Version None)
Quarter: 2010Q3

REPORT INFORMATION
  Report Type: 
  Country: None (occurrence: None)
  Receive Date: 20100811
  Receipt Date: 20100730
  Transmission Date: 20110219
  Serious: Yes (Other)
  Sender: FDA-Public Use
  Company Number: US-PFIZER INC-2010085964

PATIENT
  Sex: Female
  Weight: 69.388 kg

DRUGS (3)
  1. CHANTIX [Suspect]
     Indication: SMOKING CESSATION THERAPY
     Dosage: UNK
     Dates: start: 20100324, end: 20100712
  2. VICODIN ES [Concomitant]
     Indication: ANALGESIC THERAPY
     Dosage: UNK
     Route: 048
     Dates: start: 20071101
  3. VICODIN ES [Concomitant]
     Indication: BACK PAIN

REACTIONS (3)
  - AGITATION [None]
  - ANXIETY [None]
  - FORMICATION [None]
